FAERS Safety Report 11649904 (Version 2)
Quarter: 2016Q1

REPORT INFORMATION
  Report Type: Spontaneous
  Country: US (occurrence: US)
  Receive Date: 20151021
  Receipt Date: 20160202
  Transmission Date: 20160525
  Serious: Yes (Hospitalization, Other)
  Sender: FDA-Public Use
  Company Number: US-INSYS THERAPEUTICS, INC-INS201510-000449

PATIENT
  Age: 62 Year
  Sex: Male
  Weight: 72.57 kg

DRUGS (3)
  1. OXYCONTIN [Concomitant]
     Active Substance: OXYCODONE HYDROCHLORIDE
  2. SUBSYS [Suspect]
     Active Substance: FENTANYL
     Dates: start: 2015
  3. SUBSYS [Suspect]
     Active Substance: FENTANYL
     Indication: PAIN
     Dates: start: 201503

REACTIONS (8)
  - Road traffic accident [Recovered/Resolved]
  - Hip fracture [Recovered/Resolved]
  - Traumatic lung injury [Recovered/Resolved]
  - Eye disorder [Unknown]
  - Gait disturbance [Unknown]
  - Off label use [Unknown]
  - Rib fracture [Recovered/Resolved]
  - Skull fracture [Recovered/Resolved]

NARRATIVE: CASE EVENT DATE: 201503
